FAERS Safety Report 16616541 (Version 1)
Quarter: 2019Q3

REPORT INFORMATION
  Report Type: Spontaneous
  Country: US (occurrence: US)
  Receive Date: 20190723
  Receipt Date: 20190723
  Transmission Date: 20191004
  Serious: Yes (Other)
  Sender: FDA-Public Use
  Company Number: US-FOUNDATIONCONSUMERHC-2019-US-010796

PATIENT
  Age: 20 Year
  Sex: Female
  Weight: 44 kg

DRUGS (2)
  1. ST JOHN^S WART [Concomitant]
  2. TAKE ACTION [Suspect]
     Active Substance: LEVONORGESTREL
     Indication: POST COITAL CONTRACEPTION
     Dosage: 1.5 MG X 2 DOSES
     Dates: start: 20190423, end: 20190610

REACTIONS (4)
  - Intentional product misuse [Recovered/Resolved]
  - Exposure during pregnancy [Recovered/Resolved]
  - Pregnancy after post coital contraception [Unknown]
  - Drug ineffective [Unknown]

NARRATIVE: CASE EVENT DATE: 20190423
